FAERS Safety Report 4953476-5 (Version None)
Quarter: 2006Q1

REPORT INFORMATION
  Report Type: 
  Country: None (occurrence: None)
  Receive Date: 20060324
  Receipt Date: 20060316
  Transmission Date: 20060701
  Serious: Yes (Hospitalization)
  Sender: FDA-Public Use
  Company Number: CH-AVENTIS-200612695GDDC

PATIENT
  Age: 55 Year
  Sex: Male

DRUGS (5)
  1. AMARYL [Suspect]
     Dosage: DOSE: UNK
     Route: 048
     Dates: start: 20030101, end: 20060104
  2. GLUCOPHAGE [Suspect]
     Dosage: DOSE: UNK
     Route: 048
     Dates: start: 20030101, end: 20060104
  3. NORTRILEN [Suspect]
     Dosage: DOSE: UNK
     Route: 048
     Dates: end: 20060104
  4. TRANXILIUM [Suspect]
     Dosage: DOSE: UNK
     Route: 048
     Dates: end: 20060104
  5. COMPLAMIN [Suspect]
     Dosage: DOSE: UNK
     Route: 048
     Dates: start: 20030101, end: 20060104

REACTIONS (3)
  - DRUG ABUSER [None]
  - RENAL FAILURE ACUTE [None]
  - SOMNOLENCE [None]
